FAERS Safety Report 23554607 (Version 2)
Quarter: 2024Q2

REPORT INFORMATION
  Report Type: Spontaneous
  Country: IN (occurrence: IN)
  Receive Date: 20240222
  Receipt Date: 20240508
  Transmission Date: 20240716
  Serious: Yes (Other)
  Sender: FDA-Public Use
  Company Number: IN-FERRINGPH-2024FE00708

PATIENT

DRUGS (1)
  1. DINOPROSTONE [Suspect]
     Active Substance: DINOPROSTONE
     Indication: Induction of cervix ripening
     Dosage: 10 MG
     Route: 067
     Dates: start: 20240211, end: 20240212

REACTIONS (3)
  - Drug hypersensitivity [Unknown]
  - Chills [Recovered/Resolved]
  - Uterine tachysystole [Unknown]

NARRATIVE: CASE EVENT DATE: 20240212
